FAERS Safety Report 4505004-6 (Version None)
Quarter: 2004Q4

REPORT INFORMATION
  Report Type: 
  Country: None (occurrence: None)
  Receive Date: 20041015
  Receipt Date: 20031213
  Transmission Date: 20050328
  Serious: Yes (Other)
  Sender: FDA-Public Use
  Company Number: 2003116657

PATIENT
  Sex: Female
  Weight: 127.0072 kg

DRUGS (8)
  1. NEURONTIN [Suspect]
     Indication: DIABETIC NEUROPATHY
     Dosage: 900 MG TID ORAL
     Route: 048
     Dates: start: 20020805, end: 20031003
  2. GLIPIZIDE [Concomitant]
  3. LEVOTHYROXINE SODIUM [Concomitant]
  4. PRAVASTATIN SODIUM [Concomitant]
  5. ATENOLOL [Concomitant]
  6. ENALAPRIL [Concomitant]
  7. HYDROCHLOROTHIAZIDE [Concomitant]
  8. METFORMIN HCL [Concomitant]

REACTIONS (5)
  - DIABETIC NEUROPATHY [None]
  - DIARRHOEA [None]
  - DIZZINESS [None]
  - NAUSEA [None]
  - STOOL ANALYSIS ABNORMAL [None]
